FAERS Safety Report 9331131 (Version 2)
Quarter: 2013Q2

REPORT INFORMATION
  Report Type: Spontaneous
  Country: US (occurrence: US)
  Receive Date: 20130605
  Receipt Date: 20130605
  Transmission Date: 20140414
  Serious: Yes (Life-Threatening, Hospitalization, Other)
  Sender: FDA-Public Use
  Company Number: US-ABBOTT-13P-163-1099459-00

PATIENT
  Age: 91 Year
  Sex: Male
  Weight: 90.8 kg

DRUGS (1)
  1. K-TAB [Suspect]
     Indication: BLOOD POTASSIUM DECREASED
     Dates: start: 20130208

REACTIONS (4)
  - Cardiac arrest [Recovered/Resolved]
  - Blood potassium decreased [Recovered/Resolved]
  - Medication residue present [Unknown]
  - Cardiac arrest [Recovered/Resolved]
